FAERS Safety Report 15943134 (Version 2)
Quarter: 2019Q1

REPORT INFORMATION
  Report Type: Spontaneous
  Country: US (occurrence: US)
  Receive Date: 20190210
  Receipt Date: 20190301
  Transmission Date: 20190417
  Serious: Yes (Other)
  Sender: FDA-Public Use
  Company Number: US-ASTRAZENECA-2018SF15048

PATIENT
  Sex: Female

DRUGS (19)
  1. SIMVASTATIN. [Concomitant]
     Active Substance: SIMVASTATIN
  2. SERTRALINE [Concomitant]
     Active Substance: SERTRALINE HYDROCHLORIDE
  3. NORCO [Concomitant]
     Active Substance: ACETAMINOPHEN\HYDROCODONE BITARTRATE
  4. ZOLOFT [Concomitant]
     Active Substance: SERTRALINE HYDROCHLORIDE
  5. NEXIUM [Suspect]
     Active Substance: ESOMEPRAZOLE MAGNESIUM
     Route: 048
     Dates: start: 20130329, end: 20171002
  6. LYRICA [Concomitant]
     Active Substance: PREGABALIN
  7. ROPINIROLE. [Concomitant]
     Active Substance: ROPINIROLE
  8. AMOXICILLIN. [Concomitant]
     Active Substance: AMOXICILLIN
  9. NEXIUM [Suspect]
     Active Substance: ESOMEPRAZOLE MAGNESIUM
     Route: 048
     Dates: start: 20130329
  10. CELECOXIB. [Concomitant]
     Active Substance: CELECOXIB
  11. TRAZODONE [Concomitant]
     Active Substance: TRAZODONE HYDROCHLORIDE
  12. ALBUTEROL. [Concomitant]
     Active Substance: ALBUTEROL
  13. ALPRAZOLAM. [Concomitant]
     Active Substance: ALPRAZOLAM
  14. LISINOPRIL. [Concomitant]
     Active Substance: LISINOPRIL
  15. MIRTAZAPINE. [Concomitant]
     Active Substance: MIRTAZAPINE
  16. LEVOTHYROXINE. [Concomitant]
     Active Substance: LEVOTHYROXINE
  17. CELEBREX [Concomitant]
     Active Substance: CELECOXIB
  18. PREDNISONE. [Concomitant]
     Active Substance: PREDNISONE
  19. NEXIUM [Suspect]
     Active Substance: ESOMEPRAZOLE MAGNESIUM
     Route: 048
     Dates: start: 201303, end: 201710

REACTIONS (2)
  - Chronic kidney disease [Unknown]
  - Renal injury [Unknown]
